FAERS Safety Report 24694630 (Version 1)
Quarter: 2024Q4

REPORT INFORMATION
  Report Type: Spontaneous
  Country: US (occurrence: US)
  Receive Date: 20241204
  Receipt Date: 20241204
  Transmission Date: 20250114
  Serious: No
  Sender: PHARMACOSMOS A/S
  Company Number: US-NEBO-673930

PATIENT
  Age: 89 Year
  Sex: Female

DRUGS (1)
  1. MONOFERRIC [Suspect]
     Active Substance: FERRIC DERISOMALTOSE
     Indication: Product used for unknown indication

REACTIONS (2)
  - Erythema [Recovered/Resolved]
  - Dyspnoea [Recovered/Resolved]
